FAERS Safety Report 14713607 (Version 2)
Quarter: 2018Q2

REPORT INFORMATION
  Report Type: Spontaneous
  Country: US (occurrence: US)
  Receive Date: 20180404
  Receipt Date: 20180625
  Transmission Date: 20180711
  Serious: Yes (Other)
  Sender: FDA-Public Use
  Company Number: US-MYLANLABS-2018M1020837

PATIENT
  Sex: Female

DRUGS (11)
  1. CALCIUM FOLINATE [Suspect]
     Active Substance: LEUCOVORIN CALCIUM
     Indication: COLON CANCER METASTATIC
     Route: 065
  2. PALONOSETRON. [Concomitant]
     Active Substance: PALONOSETRON HYDROCHLORIDE
     Indication: GASTRIC CANCER
     Route: 065
  3. OXALIPLATIN. [Suspect]
     Active Substance: OXALIPLATIN
     Indication: GASTRIC CANCER
  4. IRINOTECAN [Suspect]
     Active Substance: IRINOTECAN
     Indication: GASTRIC CANCER
  5. DEXAMETHASONE. [Suspect]
     Active Substance: DEXAMETHASONE
     Indication: COLON CANCER METASTATIC
     Dosage: 40 MG, UNK
     Route: 065
  6. OXALIPLATIN. [Suspect]
     Active Substance: OXALIPLATIN
     Indication: COLON CANCER METASTATIC
     Route: 065
  7. CALCIUM FOLINATE [Suspect]
     Active Substance: LEUCOVORIN CALCIUM
     Indication: GASTRIC CANCER
  8. IRINOTECAN [Suspect]
     Active Substance: IRINOTECAN
     Indication: COLON CANCER METASTATIC
     Route: 065
  9. BEVACIZUMAB. [Concomitant]
     Active Substance: BEVACIZUMAB
     Indication: GASTRIC CANCER
     Route: 065
  10. FLUOROURACIL. [Concomitant]
     Active Substance: FLUOROURACIL
     Indication: GASTRIC CANCER
     Route: 050
  11. DEXAMETHASONE. [Suspect]
     Active Substance: DEXAMETHASONE
     Indication: GASTRIC CANCER

REACTIONS (3)
  - Haemorrhage [Unknown]
  - Haemolytic anaemia [Unknown]
  - Immune thrombocytopenic purpura [Recovered/Resolved]
